FAERS Safety Report 9499408 (Version 1)
Quarter: 2013Q1

REPORT INFORMATION
  Report Type: Spontaneous
  Country: US (occurrence: None)
  Receive Date: 20130104
  Receipt Date: 20130104
  Transmission Date: 20140127
  Serious: Yes (Hospitalization)
  Sender: FDA-Public Use
  Company Number: PHEH2012US019392

PATIENT
  Age: 48 Year
  Sex: Female

DRUGS (7)
  1. GILENYA [Suspect]
     Indication: MULTIPLE SCLEROSIS
     Route: 048
     Dates: start: 20110812, end: 20120822
  2. VITAMIN D (ERGOCALCIFEROL) [Concomitant]
  3. IRON (IRON) [Concomitant]
  4. MAXALT(RIZATRIPTAN) [Concomitant]
  5. XANAX(ALPRAZOLAM) [Concomitant]
  6. FISH OIL (FISH OIL) [Concomitant]
  7. BACLOFEN (BACLOFEN) [Concomitant]

REACTIONS (5)
  - St. Louis encephalitis [None]
  - West Nile viral infection [None]
  - Pyrexia [None]
  - Cough [None]
  - Headache [None]
